FAERS Safety Report 8022634-8 (Version None)
Quarter: 2012Q1

REPORT INFORMATION
  Report Type: 
  Country: None (occurrence: None)
  Receive Date: 20120104
  Receipt Date: 20111221
  Transmission Date: 20120608
  Serious: Yes (Other)
  Sender: FDA-Public Use
  Company Number: FR-GLAXOSMITHKLINE-B0772392A

PATIENT
  Age: 39 Year
  Sex: Male

DRUGS (2)
  1. NAPHAZOLINE HCL [Suspect]
     Indication: INFLUENZA
     Route: 065
  2. PAROXETINE [Suspect]
     Indication: ANXIETY
     Route: 065

REACTIONS (4)
  - ANXIETY [None]
  - HEADACHE [None]
  - CEREBRAL VASOCONSTRICTION [None]
  - PAIN [None]
